FAERS Safety Report 7733045-4 (Version None)
Quarter: 2011Q3

REPORT INFORMATION
  Report Type: 
  Country: None (occurrence: None)
  Receive Date: 20110907
  Receipt Date: 20110826
  Transmission Date: 20111222
  Serious: Yes (Hospitalization)
  Sender: FDA-Public Use
  Company Number: JP-JNJFOC-20110901481

PATIENT
  Age: 83 Year
  Sex: Female

DRUGS (33)
  1. LASIX [Concomitant]
     Route: 048
     Dates: start: 20110814, end: 20110822
  2. LASIX [Concomitant]
     Route: 048
     Dates: start: 20110812, end: 20110813
  3. LASIX [Concomitant]
     Route: 048
  4. ATELEC [Concomitant]
     Route: 048
     Dates: start: 20110708, end: 20110810
  5. MUCODYNE-DS [Concomitant]
     Route: 048
     Dates: start: 20110809, end: 20110809
  6. MUCODYNE-DS [Concomitant]
     Route: 048
     Dates: start: 20110810, end: 20110813
  7. ASTAT [Concomitant]
     Route: 061
     Dates: start: 20110817
  8. WARFARIN SODIUM [Concomitant]
     Route: 048
     Dates: start: 20110808, end: 20110810
  9. VECURONIUM BROMIDE [Concomitant]
     Route: 065
     Dates: start: 20110809, end: 20110809
  10. ASPIRIN [Concomitant]
     Route: 048
     Dates: start: 20110808, end: 20110822
  11. LANSOPRAZOLE [Concomitant]
     Route: 048
     Dates: start: 20110808, end: 20110809
  12. CARVEDILOL [Concomitant]
     Route: 048
     Dates: start: 20110808, end: 20110810
  13. LAC-B [Concomitant]
     Route: 048
     Dates: start: 20110809, end: 20110809
  14. WARFARIN SODIUM [Concomitant]
     Route: 048
     Dates: start: 20110818, end: 20110822
  15. PRAVASTATIN SODIUM [Concomitant]
     Route: 048
     Dates: start: 20110814, end: 20110822
  16. ACETAMINOPHEN [Concomitant]
     Route: 048
     Dates: start: 20110808, end: 20110808
  17. LEVOFLOXACIN [Suspect]
     Indication: PNEUMONIA
     Route: 048
     Dates: start: 20110816, end: 20110819
  18. PRAVASTATIN SODIUM [Concomitant]
     Route: 048
     Dates: start: 20110808, end: 20110810
  19. ZITHROMAX [Concomitant]
     Route: 048
     Dates: start: 20110808, end: 20110808
  20. LAC-B [Concomitant]
     Route: 048
     Dates: start: 20110809, end: 20110809
  21. ATELEC [Concomitant]
     Route: 048
     Dates: start: 20110812, end: 20110822
  22. ZYRTEC [Concomitant]
     Route: 048
     Dates: start: 20110820, end: 20110822
  23. JANUVIA [Concomitant]
     Route: 048
     Dates: start: 20110810, end: 20110816
  24. LEVOTHYROXINE SODIUM [Concomitant]
     Route: 048
     Dates: start: 20110808, end: 20110822
  25. PLAVIX [Concomitant]
     Route: 048
     Dates: start: 20110808, end: 20110822
  26. TARGOCID [Concomitant]
     Route: 065
     Dates: start: 20110808, end: 20110808
  27. LANSOPRAZOLE [Concomitant]
     Route: 048
     Dates: start: 20110811, end: 20110822
  28. CARVEDILOL [Concomitant]
     Route: 048
     Dates: start: 20110812, end: 20110822
  29. WARFARIN SODIUM [Concomitant]
     Route: 048
     Dates: start: 20110815, end: 20110822
  30. WARFARIN SODIUM [Concomitant]
     Route: 048
     Dates: start: 20110813, end: 20110814
  31. RINDERON-VG [Concomitant]
     Route: 061
     Dates: start: 20110815
  32. ACETAMINOPHEN [Concomitant]
     Route: 065
     Dates: start: 20110809
  33. LASIX [Concomitant]
     Route: 065
     Dates: start: 20110809, end: 20110809

REACTIONS (1)
  - TOXIC SKIN ERUPTION [None]
